FAERS Safety Report 14181247 (Version 1)
Quarter: 2017Q4

REPORT INFORMATION
  Report Type: Spontaneous
  Country: FR (occurrence: FR)
  Receive Date: 20171112
  Receipt Date: 20171112
  Transmission Date: 20180321
  Serious: Yes (Hospitalization)
  Sender: FDA-Public Use
  Company Number: FR-009507513-1711FRA003436

PATIENT
  Age: 88 Year
  Sex: Female

DRUGS (13)
  1. INSULATARD (INSULIN HUMAN, ISOPHANE) [Concomitant]
     Active Substance: INSULIN HUMAN
     Dosage: 34 IU DAILY
     Route: 058
  2. RAMIPRIL. [Concomitant]
     Active Substance: RAMIPRIL
     Dosage: PER OS, 1 TABLET DAILY
     Route: 048
  3. NORSET [Suspect]
     Active Substance: MIRTAZAPINE
     Indication: MAJOR DEPRESSION
     Dosage: ORODISPERSIBLE TABLET, PER OS,1 TABLET DAILY
     Route: 048
     Dates: start: 20170926, end: 20170927
  4. SERTRALINE HYDROCHLORIDE. [Concomitant]
     Active Substance: SERTRALINE HYDROCHLORIDE
     Indication: DEPRESSION
     Dosage: PER OS, 1 CAPSULE DAILY
     Route: 048
     Dates: start: 20170920, end: 20170925
  5. IRBESARTAN. [Concomitant]
     Active Substance: IRBESARTAN
     Dosage: PER OS, 1 TABLET DAILY
     Route: 048
  6. LANSOPRAZOLE. [Concomitant]
     Active Substance: LANSOPRAZOLE
     Dosage: PER OS, 1 TABLET DAILY
     Route: 048
  7. KARDEGIC [Concomitant]
     Active Substance: ASPIRIN DL-LYSINE
     Indication: PROPHYLAXIS
     Dosage: POWDER FOR ORAL SOLUTION IN SACHET-DOSE, PER OS, 1 SACHET DAILY
     Route: 048
  8. AMLODIPINE [Concomitant]
     Active Substance: AMLODIPINE BESYLATE
     Dosage: PER OS, 4 CAPSULES DAILY
     Route: 048
  9. MONOPROST [Concomitant]
     Active Substance: LATANOPROST
     Dosage: 50 MICROGRAM: OCULAR (OPHT), EYEDROPS IN SINGLE DOSE, 1 DROP DAILY
     Route: 047
  10. TIMOLOL. [Concomitant]
     Active Substance: TIMOLOL
     Dosage: OCULAR(OPHT), 1 DROP DAILY
     Route: 047
  11. SERESTA [Concomitant]
     Active Substance: OXAZEPAM
     Dosage: PER OS, 1 TABLET DAILY
     Route: 048
  12. DOLIPRANE [Concomitant]
     Active Substance: ACETAMINOPHEN
     Dosage: PER OS, 8 CAPSULES DAILY IF NEEDED (AT REQUEST)
     Route: 048
  13. FORSTEO [Concomitant]
     Active Substance: TERIPARATIDE
     Dosage: 20 MICROGRAM, SOLUTION FOR INJECTION IN PREFILLED PEN, 1 INJECTION DAILY
     Route: 042

REACTIONS (1)
  - Angioedema [Recovered/Resolved]

NARRATIVE: CASE EVENT DATE: 20170927
